FAERS Safety Report 12612239 (Version 1)
Quarter: 2016Q3

REPORT INFORMATION
  Report Type: Report from Study
  Country: BR (occurrence: BR)
  Receive Date: 20160801
  Receipt Date: 20160801
  Transmission Date: 20161109
  Serious: Yes (Other)
  Sender: FDA-Public Use
  Company Number: PHHY2016BR103780

PATIENT
  Sex: Female

DRUGS (1)
  1. EXJADE [Suspect]
     Active Substance: DEFERASIROX
     Indication: IRON OVERLOAD
     Dosage: 4 DF (2000 MG), QD
     Route: 065

REACTIONS (11)
  - Dyspnoea [Unknown]
  - Anuria [Recovering/Resolving]
  - Abasia [Unknown]
  - Ascites [Recovering/Resolving]
  - Gait disturbance [Unknown]
  - Anaemia [Unknown]
  - Constipation [Recovering/Resolving]
  - Asthenia [Unknown]
  - Insomnia [Unknown]
  - Decreased immune responsiveness [Unknown]
  - Abdominal distension [Unknown]
